FAERS Safety Report 17770524 (Version 2)
Quarter: 2020Q3

REPORT INFORMATION
  Report Type: Spontaneous
  Country: PT (occurrence: PT)
  Receive Date: 20200512
  Receipt Date: 20200814
  Transmission Date: 20201102
  Serious: Yes (Other)
  Sender: FDA-Public Use
  Company Number: PT-ASTRAZENECA-2020SE61565

PATIENT
  Age: 22132 Day
  Sex: Male
  Weight: 67 kg

DRUGS (4)
  1. OXAZEPAM. [Concomitant]
     Active Substance: OXAZEPAM
     Indication: ANXIETY
     Route: 048
  2. DURVALUMAB. [Suspect]
     Active Substance: DURVALUMAB
     Indication: NON-SMALL CELL LUNG CANCER STAGE III
     Dosage: 10MG/KG DE 2/2W
     Route: 042
     Dates: start: 20200316, end: 20200427
  3. DURVALUMAB. [Suspect]
     Active Substance: DURVALUMAB
     Indication: NON-SMALL CELL LUNG CANCER STAGE III
     Dosage: 10MG/KG DE 2/2W
     Route: 042
     Dates: start: 2020
  4. DURVALUMAB. [Suspect]
     Active Substance: DURVALUMAB
     Indication: NON-SMALL CELL LUNG CANCER STAGE III
     Dosage: 10MG/KG DE 2/2W
     Route: 042
     Dates: start: 20191206, end: 20200224

REACTIONS (4)
  - Thrombocytopenia [Recovering/Resolving]
  - Hypothyroidism [Recovering/Resolving]
  - Neutropenia [Recovering/Resolving]
  - Pneumonia [Unknown]

NARRATIVE: CASE EVENT DATE: 20200117
